FAERS Safety Report 4982426-0 (Version None)
Quarter: 2006Q2

REPORT INFORMATION
  Report Type: 
  Country: None (occurrence: None)
  Receive Date: 20060421
  Receipt Date: 20060406
  Transmission Date: 20061013
  Serious: Yes (Hospitalization, Other)
  Sender: FDA-Public Use
  Company Number: 2006BH008189

PATIENT
  Age: 56 Year
  Sex: Male

DRUGS (1)
  1. DIANEAL [Suspect]
     Indication: RENAL FAILURE CHRONIC
     Dosage: UNKNOWN; UNK; IP
     Route: 033

REACTIONS (3)
  - CANDIDIASIS [None]
  - FUNGAL PERITONITIS [None]
  - HALLUCINATION [None]
